FAERS Safety Report 16180810 (Version 6)
Quarter: 2022Q1

REPORT INFORMATION
  Report Type: Spontaneous
  Country: US (occurrence: US)
  Receive Date: 20190410
  Receipt Date: 20220114
  Transmission Date: 20220423
  Serious: Yes (Other)
  Sender: FDA-Public Use
  Company Number: US-PFIZER INC-2019144610

PATIENT
  Age: 74 Year
  Sex: Female
  Weight: 104 kg

DRUGS (2)
  1. TOVIAZ [Suspect]
     Active Substance: FESOTERODINE FUMARATE
     Indication: Hypertonic bladder
     Dosage: 8 MG, 1X/DAY (AM)
     Route: 048
     Dates: start: 2014
  2. TOVIAZ [Suspect]
     Active Substance: FESOTERODINE FUMARATE
     Indication: Urinary incontinence
     Dosage: 8 MG, 1X/DAY (AM)
     Route: 048

REACTIONS (4)
  - Anxiety [Unknown]
  - Product dose omission issue [Recovered/Resolved]
  - Pollakiuria [Recovered/Resolved]
  - Illness [Unknown]

NARRATIVE: CASE EVENT DATE: 20190101
